FAERS Safety Report 4778160-2 (Version None)
Quarter: 2005Q3

REPORT INFORMATION
  Report Type: 
  Country: None (occurrence: None)
  Receive Date: 20050922
  Receipt Date: 20050913
  Transmission Date: 20060218
  Serious: Yes (Hospitalization, Other)
  Sender: FDA-Public Use
  Company Number: 2005064061

PATIENT
  Sex: Female
  Weight: 104.3273 kg

DRUGS (4)
  1. NARDIL [Suspect]
     Indication: ANXIETY
     Dosage: 60 MG (15 MG, 4 IN 1 D), ORAL
     Route: 048
  2. NARDIL [Suspect]
     Indication: DEPRESSION
     Dosage: 60 MG (15 MG, 4 IN 1 D), ORAL
     Route: 048
  3. KLONOPIN [Concomitant]
  4. SYNTHROID [Concomitant]

REACTIONS (15)
  - ABNORMAL DREAMS [None]
  - ANXIETY [None]
  - BIPOLAR II DISORDER [None]
  - BORDERLINE PERSONALITY DISORDER [None]
  - CONDITION AGGRAVATED [None]
  - DEPRESSION [None]
  - DRUG INEFFECTIVE [None]
  - HYSTERECTOMY [None]
  - INSOMNIA [None]
  - OBSESSIVE-COMPULSIVE DISORDER [None]
  - PANIC ATTACK [None]
  - PHARMACEUTICAL PRODUCT COMPLAINT [None]
  - POST-TRAUMATIC STRESS DISORDER [None]
  - SUICIDE ATTEMPT [None]
  - VISUAL DISTURBANCE [None]
